FAERS Safety Report 7065544-5 (Version None)
Quarter: 2010Q4

REPORT INFORMATION
  Report Type: 
  Country: None (occurrence: None)
  Receive Date: 20101027
  Receipt Date: 20101014
  Transmission Date: 20110411
  Serious: Yes (Other)
  Sender: FDA-Public Use
  Company Number: US-AMGEN-USASP2010000389

PATIENT

DRUGS (2)
  1. NPLATE [Suspect]
     Dosage: 10 A?G/KG, QWK
     Route: 058
     Dates: start: 20100616, end: 20100929
  2. PREDNISONE [Concomitant]

REACTIONS (4)
  - CONTUSION [None]
  - DRUG INEFFECTIVE [None]
  - HAEMATOCHEZIA [None]
  - PLATELET COUNT DECREASED [None]
